FAERS Safety Report 16444895 (Version 2)
Quarter: 2019Q3

REPORT INFORMATION
  Report Type: Report from Study
  Country: JP (occurrence: JP)
  Receive Date: 20190618
  Receipt Date: 20190731
  Transmission Date: 20191004
  Serious: Yes (Death, Hospitalization)
  Sender: FDA-Public Use
  Company Number: JP-ACTELION-A-CH2019-191800

PATIENT
  Age: 68 Year
  Sex: Female

DRUGS (21)
  1. REGPARA [Concomitant]
     Active Substance: CINACALCET HYDROCHLORIDE
  2. METHYCOBAL [Concomitant]
     Active Substance: METHYLCOBALAMIN
  3. FOSRENOL [Concomitant]
     Active Substance: LANTHANUM CARBONATE
  4. RENAGEL [Concomitant]
     Active Substance: SEVELAMER HYDROCHLORIDE
  5. TERNELIN [Concomitant]
     Active Substance: TIZANIDINE
  6. REVATIO [Concomitant]
     Active Substance: SILDENAFIL CITRATE
  7. OPSUMIT [Suspect]
     Active Substance: MACITENTAN
     Indication: PULMONARY ARTERIAL HYPERTENSION
     Dosage: 5 MG, QD
     Route: 048
     Dates: start: 20170220
  8. OPSUMIT [Suspect]
     Active Substance: MACITENTAN
     Dosage: 10 MG, QD
     Route: 048
     Dates: start: 20181108
  9. WARFARIN [Concomitant]
     Active Substance: WARFARIN
  10. PROMAC [Concomitant]
     Active Substance: NITROFURANTOIN
  11. ALLEGRA [Concomitant]
     Active Substance: FEXOFENADINE HYDROCHLORIDE
  12. UPTRAVI [Suspect]
     Active Substance: SELEXIPAG
     Indication: PULMONARY ARTERIAL HYPERTENSION
     Dosage: 0.2 MG, BID
     Route: 048
     Dates: start: 20181106, end: 20181107
  13. RISUMIC [Concomitant]
     Active Substance: AMEZINIUM METILSULFATE
  14. SHAKUYAKUKANZOTO [Concomitant]
     Active Substance: HERBALS
  15. NORVASC [Concomitant]
     Active Substance: AMLODIPINE BESYLATE
  16. NAUZELIN [Concomitant]
     Active Substance: DOMPERIDONE
  17. RIONA [Concomitant]
     Active Substance: FERRIC CITRATE ANHYDROUS
  18. OXYGEN. [Concomitant]
     Active Substance: OXYGEN
  19. FEBURIC [Concomitant]
     Active Substance: FEBUXOSTAT
  20. ACINON [Concomitant]
     Active Substance: NIZATIDINE
  21. DOPS [Concomitant]
     Active Substance: DROXIDOPA

REACTIONS (4)
  - Pneumonia [Fatal]
  - Hypoxia [Fatal]
  - Concomitant disease aggravated [Fatal]
  - Rash [Recovered/Resolved]

NARRATIVE: CASE EVENT DATE: 20181107
